FAERS Safety Report 5166653-8 (Version None)
Quarter: 2006Q4

REPORT INFORMATION
  Report Type: 
  Country: None (occurrence: None)
  Receive Date: 20061129
  Receipt Date: 20061123
  Transmission Date: 20070319
  Serious: Yes (Other)
  Sender: FDA-Public Use
  Company Number: GXKR2006DK07592

PATIENT
  Age: 31 Year
  Sex: Male
  Weight: 90 kg

DRUGS (2)
  1. ENALAPRIL MALEATE [Suspect]
     Indication: GLOMERULONEPHRITIS
     Dosage: 10 MG, ORAL
     Route: 048
     Dates: start: 20040621, end: 20060913
  2. IRBESARTAN [Suspect]
     Indication: GLOMERULONEPHRITIS
     Dosage: 300 MG, ORAL
     Route: 048
     Dates: start: 20040101, end: 20060913

REACTIONS (2)
  - INFERTILITY MALE [None]
  - SPERMATOZOA PROGRESSIVE MOTILITY DECREASED [None]
